FAERS Safety Report 4893118-0 (Version None)
Quarter: 2005Q4

REPORT INFORMATION
  Report Type: 
  Country: None (occurrence: None)
  Receive Date: 20051223
  Receipt Date: 20041209
  Transmission Date: 20060501
  Serious: Yes (Other)
  Sender: FDA-Public Use
  Company Number: PHEH2004US13185

PATIENT
  Age: 49 Year
  Sex: Female

DRUGS (3)
  1. CLOZARIL [Suspect]
     Indication: SCHIZOPHRENIA
     Dosage: 125 MG, TID, ORAL
     Route: 048
  2. PAMELOR [Concomitant]
  3. LITHIUM CARBONATE [Concomitant]

REACTIONS (5)
  - DIARRHOEA [None]
  - INCONTINENCE [None]
  - MALAISE [None]
  - MEMORY IMPAIRMENT [None]
  - TREMOR [None]
